FAERS Safety Report 22090874 (Version 2)
Quarter: 2023Q1

REPORT INFORMATION
  Report Type: Spontaneous
  Country: IR (occurrence: IR)
  Receive Date: 20230314
  Receipt Date: 20230314
  Transmission Date: 20230418
  Serious: Yes (Other)
  Sender: FDA-Public Use
  Company Number: None

PATIENT
  Age: 67 Year
  Sex: Female

DRUGS (2)
  1. GABAPENTIN [Suspect]
     Active Substance: GABAPENTIN
     Indication: Insomnia
     Dosage: 100/HS, AT BED TIME
     Route: 065
  2. QUETIAPINE [Suspect]
     Active Substance: QUETIAPINE
     Indication: Insomnia
     Dosage: 12.5 MILLIGRAM, AT BED TIME; PRESCRIBED QUETIAPINE 12.5MG HS
     Route: 065

REACTIONS (2)
  - Secondary hypertension [Unknown]
  - Off label use [Unknown]
